FAERS Safety Report 11375129 (Version 2)
Quarter: 2015Q4

REPORT INFORMATION
  Report Type: Spontaneous
  Country: US (occurrence: US)
  Receive Date: 20150813
  Receipt Date: 20151002
  Transmission Date: 20160304
  Serious: No
  Sender: FDA-Public Use
  Company Number: US-ACTELION PHARMACEUTICALS US, INC.-A-NJ2015-120747

PATIENT
  Age: 70 Year
  Sex: Male

DRUGS (3)
  1. TYVASO [Suspect]
     Active Substance: TREPROSTINIL
     Indication: PRODUCT USED FOR UNKNOWN INDICATION
     Dosage: 12 PUFF, UNK
     Route: 065
     Dates: end: 201508
  2. OPSUMIT [Suspect]
     Active Substance: MACITENTAN
     Indication: PULMONARY ARTERIAL HYPERTENSION
     Dosage: 10 MG, QD
     Route: 048
     Dates: start: 20150312
  3. RIOCIGUAT [Concomitant]
     Active Substance: RIOCIGUAT

REACTIONS (16)
  - Pain in extremity [Unknown]
  - Headache [Unknown]
  - Diarrhoea [Unknown]
  - Muscle spasms [Unknown]
  - Cough [Unknown]
  - Sputum increased [Unknown]
  - Throat irritation [Unknown]
  - Glossitis [Unknown]
  - Muscular weakness [Unknown]
  - Lichen planus [Unknown]
  - Hypotension [Unknown]
  - Pain [Unknown]
  - Glossodynia [Unknown]
  - Oropharyngeal pain [Unknown]
  - Dyspnoea [Unknown]
  - Dizziness [Unknown]

NARRATIVE: CASE EVENT DATE: 20150630
